FAERS Safety Report 18817166 (Version 2)
Quarter: 2021Q1

REPORT INFORMATION
  Report Type: Spontaneous
  Country: US (occurrence: US)
  Receive Date: 20210201
  Receipt Date: 20210216
  Transmission Date: 20210419
  Serious: Yes (Hospitalization, Other)
  Sender: FDA-Public Use
  Company Number: US-SERVIER-S21000591

PATIENT

DRUGS (4)
  1. BENADRYL [Concomitant]
     Active Substance: DIPHENHYDRAMINE HYDROCHLORIDE
     Indication: PREMEDICATION
     Dosage: 50 MG, ONE DOSE
     Route: 048
     Dates: start: 20210112, end: 20210112
  2. ONCASPAR [Suspect]
     Active Substance: PEGASPARGASE
     Indication: ACUTE LYMPHOCYTIC LEUKAEMIA
     Dosage: UNK
     Route: 065
     Dates: start: 20201022, end: 20201022
  3. ONCASPAR [Suspect]
     Active Substance: PEGASPARGASE
     Dosage: 4350 IU, ONE DOSE
     Route: 042
     Dates: start: 20201208, end: 20201208
  4. ONCASPAR [Suspect]
     Active Substance: PEGASPARGASE
     Dosage: 4350 IU, ONE DOSE
     Route: 042
     Dates: start: 20210112, end: 20210112

REACTIONS (2)
  - Anaphylactic reaction [Recovered/Resolved]
  - Hypersensitivity [Recovered/Resolved]

NARRATIVE: CASE EVENT DATE: 20201208
